FAERS Safety Report 26100022 (Version 1)
Quarter: 2025Q4

REPORT INFORMATION
  Report Type: Spontaneous
  Country: CN (occurrence: CN)
  Receive Date: 20251128
  Receipt Date: 20251128
  Transmission Date: 20260118
  Serious: Yes (Hospitalization, Other)
  Sender: PHARMOBEDIENT CONSULTING, LLC
  Company Number: CN-Pharmobedient-000549

PATIENT
  Age: 75 Year
  Sex: Female

DRUGS (1)
  1. ACYCLOVIR [Suspect]
     Active Substance: ACYCLOVIR
     Indication: Herpes zoster meningoencephalitis
     Route: 042

REACTIONS (4)
  - Renal impairment [Recovered/Resolved]
  - Drug intolerance [Recovered/Resolved]
  - Blood creatinine increased [Recovered/Resolved]
  - Neurological symptom [Recovered/Resolved]
